FAERS Safety Report 6240319-5 (Version None)
Quarter: 2009Q2

REPORT INFORMATION
  Report Type: 
  Country: None (occurrence: None)
  Receive Date: 20090623
  Receipt Date: 20080708
  Transmission Date: 20091009
  Serious: No
  Sender: FDA-Public Use
  Company Number: US-ASTRAZENECA-2008UW13658

PATIENT
  Sex: Male
  Weight: 81.6 kg

DRUGS (11)
  1. PULMICORT-100 [Suspect]
     Indication: ASTHMA
     Dosage: 180 MCG
     Route: 055
  2. LISINOPRIL [Concomitant]
  3. CARDIZEM [Concomitant]
  4. AMLODIPINE [Concomitant]
  5. HYDROCHLOROTHIAZIDE [Concomitant]
  6. NEXIUM [Concomitant]
  7. CLINDAMYCIN [Concomitant]
  8. GLUCOPHAGE [Concomitant]
  9. AMARIL [Concomitant]
  10. VITAMINS [Concomitant]
  11. ALBUTEROL [Concomitant]

REACTIONS (3)
  - COUGH [None]
  - DYSPHONIA [None]
  - FEELING ABNORMAL [None]
